FAERS Safety Report 6782139-9 (Version None)
Quarter: 2010Q2

REPORT INFORMATION
  Report Type: 
  Country: None (occurrence: None)
  Receive Date: 20100621
  Receipt Date: 20100608
  Transmission Date: 20101027
  Serious: Yes (Hospitalization, Other)
  Sender: FDA-Public Use
  Company Number: US-MERCK-1001USA03813

PATIENT
  Age: 76 Year
  Sex: Female
  Weight: 58 kg

DRUGS (1)
  1. FOSAMAX [Suspect]
     Indication: OSTEOPOROSIS
     Route: 048
     Dates: start: 19950101, end: 20090901

REACTIONS (38)
  - ABDOMINAL PAIN [None]
  - ABSCESS [None]
  - ARTHRALGIA [None]
  - ARTHRITIS [None]
  - BACK PAIN [None]
  - BASEDOW'S DISEASE [None]
  - BLOOD PRESSURE INCREASED [None]
  - BODY HEIGHT DECREASED [None]
  - BRADYCARDIA [None]
  - BREAST CANCER [None]
  - CATARACT [None]
  - CHRONIC OBSTRUCTIVE PULMONARY DISEASE [None]
  - COUGH [None]
  - DENTAL CARIES [None]
  - DENTAL NECROSIS [None]
  - DEPRESSION [None]
  - DIZZINESS POSTURAL [None]
  - FATIGUE [None]
  - GASTRITIS [None]
  - HYPERTHYROIDISM [None]
  - HYPOTHYROIDISM [None]
  - IMPAIRED HEALING [None]
  - INFLAMMATION [None]
  - INTERSTITIAL LUNG DISEASE [None]
  - NAUSEA [None]
  - NOCTURIA [None]
  - NODULE [None]
  - ORAL INFECTION [None]
  - ORAL TORUS [None]
  - OSTEONECROSIS OF JAW [None]
  - PAIN IN JAW [None]
  - POSTMENOPAUSE [None]
  - RENAL FAILURE [None]
  - RETINAL HAEMORRHAGE [None]
  - TOOTH FRACTURE [None]
  - UTERINE DISORDER [None]
  - VOMITING [None]
  - WEIGHT DECREASED [None]
